FAERS Safety Report 5851377-1 (Version None)
Quarter: 2008Q3

REPORT INFORMATION
  Report Type: 
  Country: None (occurrence: None)
  Receive Date: 20080731
  Receipt Date: 20080414
  Transmission Date: 20090109
  Serious: No
  Sender: FDA-Public Use
  Company Number: 2006PV022770

PATIENT
  Age: 46 Year
  Sex: Female
  Weight: 157.9 kg

DRUGS (7)
  1. EXENATIDE(EXENATIDE) PEN,DISPOSABLE [Suspect]
     Indication: TYPE 1 DIABETES MELLITUS
     Dosage: 5 UG, 2/D, SUBCUTANEOUS : 10 UG, SUBCUTANEOUS : SUBCUTANEOUS
     Route: 058
     Dates: start: 20060401, end: 20060701
  2. EXENATIDE(EXENATIDE) PEN,DISPOSABLE [Suspect]
     Indication: TYPE 1 DIABETES MELLITUS
     Dosage: 5 UG, 2/D, SUBCUTANEOUS : 10 UG, SUBCUTANEOUS : SUBCUTANEOUS
     Route: 058
     Dates: start: 20060701, end: 20061008
  3. METFORMIN HCL [Concomitant]
  4. AVANDARYL [Concomitant]
  5. HUMULIN N [Concomitant]
  6. HUMULIN R [Concomitant]
  7. MEDICATION PILL [Concomitant]

REACTIONS (2)
  - DECREASED APPETITE [None]
  - WEIGHT DECREASED [None]
